FAERS Safety Report 11189864 (Version 1)
Quarter: 2015Q2

REPORT INFORMATION
  Report Type: Spontaneous
  Country: US (occurrence: US)
  Receive Date: 20150615
  Receipt Date: 20150615
  Transmission Date: 20150821
  Serious: No
  Sender: FDA-Public Use
  Company Number: US-PFIZER INC-2015197019

PATIENT
  Age: 10 Year
  Sex: Female

DRUGS (1)
  1. ADVIL [Suspect]
     Active Substance: IBUPROFEN
     Indication: PYREXIA
     Dosage: 1 EVERY COUPLE OF HOURS

REACTIONS (2)
  - Pyrexia [Unknown]
  - Drug administered to patient of inappropriate age [Unknown]
